FAERS Safety Report 4558252-3 (Version None)
Quarter: 2005Q1

REPORT INFORMATION
  Report Type: 
  Country: None (occurrence: None)
  Receive Date: 20050121
  Receipt Date: 20050111
  Transmission Date: 20050727
  Serious: Yes (Other)
  Sender: FDA-Public Use
  Company Number: FR-BRISTOL-MYERS SQUIBB COMPANY-12821740

PATIENT
  Age: 1 Day
  Sex: Male
  Weight: 1560 kg

DRUGS (5)
  1. VIDEX [Suspect]
     Route: 042
     Dates: start: 20040730
  2. EPIVIR [Suspect]
     Route: 064
     Dates: end: 20040730
  3. VIRACEPT [Suspect]
     Route: 064
     Dates: end: 20040730
  4. ZIDOVUDINE [Concomitant]
     Route: 042
     Dates: start: 20040730, end: 20040101
  5. ZIDOVUDINE [Concomitant]
     Route: 048
     Dates: start: 20040101

REACTIONS (4)
  - ABDOMINAL DISTENSION [None]
  - FEEDING PROBLEM IN NEWBORN [None]
  - MECONIUM STAIN [None]
  - PREMATURE BABY [None]
